FAERS Safety Report 9518014 (Version 2)
Quarter: 2013Q4

REPORT INFORMATION
  Report Type: Spontaneous
  Country: US (occurrence: US)
  Receive Date: 20130912
  Receipt Date: 20131009
  Transmission Date: 20140711
  Serious: No
  Sender: FDA-Public Use
  Company Number: US-PFIZER INC-2013260582

PATIENT
  Age: 65 Year
  Sex: Male

DRUGS (3)
  1. DOXORUBICIN HCL [Suspect]
     Indication: METASTATIC RENAL CELL CARCINOMA
     Dosage: UNK
     Dates: start: 201210
  2. GEMCITABINE HYDROCHLORIDE [Suspect]
     Indication: METASTATIC RENAL CELL CARCINOMA
     Dosage: UNK
     Dates: start: 201210
  3. WARFARIN [Concomitant]
     Indication: ANTICOAGULANT THERAPY

REACTIONS (6)
  - Malaise [Unknown]
  - Decreased appetite [Unknown]
  - Fatigue [Unknown]
  - Dyspnoea exertional [Unknown]
  - Disease progression [Unknown]
  - Metastatic renal cell carcinoma [Unknown]
